FAERS Safety Report 9771895 (Version 1)
Quarter: 2013Q3

REPORT INFORMATION
  Report Type: Spontaneous
  Country: UG (occurrence: None)
  Receive Date: 20130930
  Receipt Date: 20130930
  Transmission Date: 20140515
  Serious: Yes (Hospitalization, Other)
  Sender: FDA-Public Use
  Company Number: VAL_02741_2013

PATIENT
  Age: 23 Year
  Sex: Female

DRUGS (5)
  1. METOPROLOL TARTRATE [Suspect]
     Indication: LABILE BLOOD PRESSURE
     Route: 042
  2. HYDRALAZINE [Suspect]
     Indication: LABILE BLOOD PRESSURE
     Route: 042
  3. MAGNESIUM SULPHATE /07507001/ (UNKNOWN) [Concomitant]
  4. PRAZOSIN (UNKNOWN) [Concomitant]
  5. NIFEDIPINE (UNKNOWN) [Concomitant]

REACTIONS (3)
  - Maternal exposure during pregnancy [None]
  - Premature delivery [None]
  - Premature labour [None]
